FAERS Safety Report 6245171-X (Version None)
Quarter: 2009Q2

REPORT INFORMATION
  Report Type: 
  Country: None (occurrence: None)
  Receive Date: 20090619
  Receipt Date: 20090417
  Transmission Date: 20091009
  Serious: No
  Sender: FDA-Public Use
  Company Number: ALL1-2009-00817

PATIENT
  Age: 8 Year
  Sex: Male

DRUGS (2)
  1. VYVANSE [Suspect]
     Indication: ATTENTION DEFICIT/HYPERACTIVITY DISORDER
     Dosage: 30 MG, 1X/DAY; QD, ORAL; 40 MG, 1X/DAY; QD, ORAL
     Route: 048
     Dates: start: 20090201, end: 20090301
  2. VYVANSE [Suspect]
     Indication: ATTENTION DEFICIT/HYPERACTIVITY DISORDER
     Dosage: 30 MG, 1X/DAY; QD, ORAL; 40 MG, 1X/DAY; QD, ORAL
     Route: 048
     Dates: start: 20090301

REACTIONS (3)
  - ALOPECIA [None]
  - DRUG EFFECT DECREASED [None]
  - TRICHOTILLOMANIA [None]
